FAERS Safety Report 24174785 (Version 1)
Quarter: 2024Q3

REPORT INFORMATION
  Report Type: Report from Study
  Country: CN (occurrence: CN)
  Receive Date: 20240805
  Receipt Date: 20240805
  Transmission Date: 20241017
  Serious: Yes (Other)
  Sender: JOHNSON AND JOHNSON
  Company Number: CN-JNJFOC-20240780955

PATIENT

DRUGS (5)
  1. REMICADE [Suspect]
     Active Substance: INFLIXIMAB
     Indication: Product used for unknown indication
     Route: 041
  2. SIMPONI [Suspect]
     Active Substance: GOLIMUMAB
     Indication: Product used for unknown indication
     Route: 058
  3. ADALIMUMAB [Suspect]
     Active Substance: ADALIMUMAB
     Indication: Product used for unknown indication
     Route: 065
  4. ETANERCEPT [Suspect]
     Active Substance: ETANERCEPT
     Indication: Product used for unknown indication
     Route: 065
  5. CERTOLIZUMAB [Suspect]
     Active Substance: CERTOLIZUMAB
     Indication: Product used for unknown indication
     Route: 065

REACTIONS (2)
  - Tuberculosis [Unknown]
  - Infection [Unknown]
